FAERS Safety Report 11599003 (Version 2)
Quarter: 2015Q4

REPORT INFORMATION
  Report Type: Spontaneous
  Country: JP (occurrence: JP)
  Receive Date: 20151006
  Receipt Date: 20151021
  Transmission Date: 20160304
  Serious: Yes (Other)
  Sender: FDA-Public Use
  Company Number: JP-GLAXOSMITHKLINE-JP2015JPN139661

PATIENT
  Age: 9 Year
  Sex: Female
  Weight: 25 kg

DRUGS (3)
  1. MEDICON (DEXTROMETHORPHAN HYDROBROMIDE HYDRATE) [Concomitant]
     Dosage: 15 MG, BID
     Dates: start: 20150914
  2. SINGULAIR [Concomitant]
     Active Substance: MONTELUKAST SODIUM
     Dosage: 5 MG, QD
     Dates: start: 20150914
  3. VENTOLINE [Suspect]
     Active Substance: ALBUTEROL
     Indication: COUGH
     Dosage: 2 MG, BID
     Route: 048
     Dates: start: 20150914, end: 20150914

REACTIONS (3)
  - Abasia [Recovered/Resolved]
  - Pain in extremity [Recovered/Resolved]
  - Hypoaesthesia [Recovered/Resolved]

NARRATIVE: CASE EVENT DATE: 20150914
